FAERS Safety Report 25371034 (Version 2)
Quarter: 2025Q2

REPORT INFORMATION
  Report Type: Spontaneous
  Country: US (occurrence: US)
  Receive Date: 20250529
  Receipt Date: 20250624
  Transmission Date: 20250716
  Serious: Yes (Hospitalization, Other)
  Sender: AMGEN
  Company Number: US-AMGEN-USASP2025101115

PATIENT
  Age: 70 Year
  Sex: Female

DRUGS (5)
  1. REPATHA [Suspect]
     Active Substance: EVOLOCUMAB
     Indication: Hypercholesterolaemia
     Dosage: 140 MILLIGRAM, Q2WK
     Route: 065
     Dates: start: 2018, end: 20250516
  2. REPATHA [Suspect]
     Active Substance: EVOLOCUMAB
     Indication: Blood cholesterol abnormal
  3. NORTRIPTYLINE [Concomitant]
     Active Substance: NORTRIPTYLINE
     Route: 065
  4. CANNABIDIOL\HERBALS [Concomitant]
     Active Substance: CANNABIDIOL\HERBALS
     Route: 065
  5. DOXYCYCLINE HYDROCHLORIDE [Concomitant]
     Active Substance: DOXYCYCLINE HYDROCHLORIDE
     Route: 065

REACTIONS (39)
  - Alcoholism [Not Recovered/Not Resolved]
  - Autoimmune disorder [Not Recovered/Not Resolved]
  - Atypical pneumonia [Unknown]
  - Respiratory disorder [Not Recovered/Not Resolved]
  - Blood cholesterol increased [Not Recovered/Not Resolved]
  - Peripheral arterial occlusive disease [Not Recovered/Not Resolved]
  - Gait disturbance [Not Recovered/Not Resolved]
  - Dysphagia [Unknown]
  - Proteinuria [Unknown]
  - Arthropathy [Unknown]
  - Treatment noncompliance [Unknown]
  - Pulmonary calcification [Unknown]
  - Intervertebral disc calcification [Unknown]
  - Arthritis [Unknown]
  - Bursitis [Unknown]
  - Tendonitis [Unknown]
  - Bacterial infection [Unknown]
  - Therapeutic product effect decreased [Unknown]
  - Nasal discharge discolouration [Unknown]
  - Insomnia [Unknown]
  - Blood glucose increased [Not Recovered/Not Resolved]
  - Arteriosclerosis [Unknown]
  - Malabsorption [Unknown]
  - Renal disorder [Unknown]
  - Osteoporosis [Unknown]
  - Mean platelet volume decreased [Unknown]
  - Dehydration [Unknown]
  - Liver disorder [Unknown]
  - Hypoaesthesia [Unknown]
  - Asthenia [Unknown]
  - Illness [Unknown]
  - Vascular occlusion [Unknown]
  - Chronic obstructive pulmonary disease [Unknown]
  - Nasal cyst [Unknown]
  - Pharyngeal cyst [Unknown]
  - Sleep apnoea syndrome [Unknown]
  - Contusion [Not Recovered/Not Resolved]
  - Urinary tract infection [Unknown]
  - Upper respiratory tract infection [Unknown]

NARRATIVE: CASE EVENT DATE: 20220101
